FAERS Safety Report 11980880 (Version 1)
Quarter: 2016Q1

REPORT INFORMATION
  Report Type: Spontaneous
  Country: US (occurrence: US)
  Receive Date: 20160129
  Receipt Date: 20160129
  Transmission Date: 20160526
  Serious: Yes (Other)
  Sender: FDA-Public Use
  Company Number: US-PFIZER INC-2016046330

PATIENT
  Age: 22 Year
  Sex: Female
  Weight: 55.79 kg

DRUGS (1)
  1. DEPO-PROVERA [Suspect]
     Active Substance: MEDROXYPROGESTERONE ACETATE
     Indication: CONTRACEPTION
     Dosage: TOOK FOUR DOSES OVER THE COURSE OF 4-5 MONTHS, ONCE EVERY 3 WEEKS

REACTIONS (8)
  - Polycystic ovaries [Not Recovered/Not Resolved]
  - Amenorrhoea [Recovering/Resolving]
  - Infertility [Unknown]
  - Menstruation irregular [Not Recovered/Not Resolved]
  - Dizziness [Recovering/Resolving]
  - Weight increased [Recovered/Resolved]
  - Hormone level abnormal [Unknown]
  - Vertigo [Recovering/Resolving]

NARRATIVE: CASE EVENT DATE: 2014
